FAERS Safety Report 5061974-1 (Version None)
Quarter: 2006Q3

REPORT INFORMATION
  Report Type: 
  Country: None (occurrence: None)
  Receive Date: 20060726
  Receipt Date: 20060719
  Transmission Date: 20061208
  Serious: Yes (Other)
  Sender: FDA-Public Use
  Company Number: US-AVENTIS-200616091US

PATIENT
  Age: 35 Year
  Sex: Female

DRUGS (1)
  1. KETEK [Suspect]
     Indication: LOWER RESPIRATORY TRACT INFECTION
     Dosage: DOSE: UNKNOWN

REACTIONS (2)
  - HEPATIC FAILURE [None]
  - UNEVALUABLE EVENT [None]
